FAERS Safety Report 8472544 (Version 6)
Quarter: 2014Q1

REPORT INFORMATION
  Report Type: Spontaneous
  Country: US (occurrence: US)
  Receive Date: 20120322
  Receipt Date: 20140207
  Transmission Date: 20141002
  Serious: Yes (Death, Hospitalization)
  Sender: FDA-Public Use
  Company Number: US-GLAXOSMITHKLINE-A0970703A

PATIENT
  Age: 62 Year
  Sex: Male

DRUGS (1)
  1. AVANDIA [Suspect]
     Indication: DIABETES MELLITUS
     Dosage: 4MG TWICE PER DAY
     Route: 048
     Dates: start: 2007, end: 20100310

REACTIONS (5)
  - Haemorrhage intracranial [Fatal]
  - Cerebrovascular accident [Unknown]
  - Hyperlipidaemia [Unknown]
  - Dyslipidaemia [Unknown]
  - Hypertension [Unknown]
